FAERS Safety Report 20852129 (Version 1)
Quarter: 2022Q2

REPORT INFORMATION
  Report Type: Spontaneous
  Country: CH (occurrence: CH)
  Receive Date: 20220520
  Receipt Date: 20220520
  Transmission Date: 20220721
  Serious: Yes (Hospitalization)
  Sender: FDA-Public Use
  Company Number: None

PATIENT
  Age: 45 Year
  Sex: Female

DRUGS (14)
  1. CLONAZEPAM [Suspect]
     Active Substance: CLONAZEPAM
     Indication: Trigeminal neuralgia
     Dosage: 0.5 MG, TID(RIVOTRIL (CLONAZEPAM) 0.5 MG 2-2-2 (3 MG/DAY) FROM APPROX. 18.12.2021 UNTIL PROBABLY)
     Route: 048
     Dates: start: 20211218, end: 20211228
  2. CLONAZEPAM [Suspect]
     Active Substance: CLONAZEPAM
     Indication: Trigeminal neuralgia
     Dosage: 0.5 MG, TID(RIVOTRIL (CLONAZEPAM) 0.5 MG 2-2-2 (3 MG/DAY) FROM APPROX. 18.12.2021 UNTIL PROBABLY)
     Route: 048
     Dates: start: 20211229
  3. PHENYTOIN [Suspect]
     Active Substance: PHENYTOIN
     Indication: Trigeminal neuralgia
     Dosage: 100 MG, TID(PHENHYDAN (PHENYTOIN) 100 MG 1-1-1 SINCE UNKNOWN DATE UNTIL APPROX. 07.12.2021, RESTA...
     Route: 048
     Dates: start: 20211215, end: 20211221
  4. PHENYTOIN [Suspect]
     Active Substance: PHENYTOIN
     Indication: Trigeminal neuralgia
     Dosage: 100 MG, TID(PHENHYDAN (PHENYTOIN) 100 MG 1-1-1 SINCE UNKNOWN DATE UNTIL APPROX. 07.12.2021, RESTA...
     Route: 048
     Dates: start: 20211222, end: 20211228
  5. PHENYTOIN [Suspect]
     Active Substance: PHENYTOIN
     Indication: Trigeminal neuralgia
     Dosage: 100 MG, TID
     Route: 048
     Dates: start: 20211230
  6. PHENYTOIN [Suspect]
     Active Substance: PHENYTOIN
     Indication: Trigeminal neuralgia
     Dosage: 100 MG, TID(PHENHYDANE (PHENYTOIN) 100 MG 1-1-1 SINCE UNKNOWN DATE UNTIL APPROX. 07.12.2021, REST...
     Route: 048
     Dates: end: 20211207
  7. PREGABALIN [Concomitant]
     Active Substance: PREGABALIN
     Dosage: 150 MG, BID(PREGABALIN (EXACT PREPARATION NOT KNOWN) 150 MG 1-0-1)
     Route: 048
     Dates: start: 2016
  8. PREGABALIN [Concomitant]
     Active Substance: PREGABALIN
     Dosage: 75 MG. BID(75MG 1-0-1, SINCE 2016.)
     Route: 048
     Dates: start: 2016
  9. CARBAMAZEPINE [Concomitant]
     Active Substance: CARBAMAZEPINE
     Dosage: 400 MG,BID(400 MG 2-0-3, SINCE 11.2016)
     Route: 048
     Dates: start: 201611
  10. LAMOTRIGINE [Concomitant]
     Active Substance: LAMOTRIGINE
     Dosage: 100 MG, BID(LAMOTRIGINE (EXACT PREPARATION NOT KNOWN) 100 MG 1-0-1)
     Route: 048
  11. LIORESAL [Concomitant]
     Active Substance: BACLOFEN
     Dosage: 10 MG, TID(10 MG 1-1-1)
     Route: 048
  12. ETHINYL ESTRADIOL\GESTODENE [Concomitant]
     Active Substance: ETHINYL ESTRADIOL\GESTODENE
     Dosage: UNK(GYSELLE 20 (GESTODENE, ETHINYL ESTRADIOL))
     Route: 048
  13. VITAMIN D3 [Concomitant]
     Active Substance: CHOLECALCIFEROL
     Dosage: 0.4 ML, DAILY(VITAMIN D3 4000IE/ML 0.4 ML /DAY)
     Route: 048
  14. THIAMINE HYDROCHLORIDE [Concomitant]
     Active Substance: THIAMINE HYDROCHLORIDE
     Dosage: UNK
     Route: 065

REACTIONS (7)
  - Toxicity to various agents [Recovered/Resolved]
  - Disturbance in attention [Recovered/Resolved]
  - Somnolence [Recovered/Resolved]
  - Nystagmus [Recovered/Resolved]
  - Dysarthria [Recovered/Resolved]
  - Myoclonus [Recovered/Resolved]
  - Product use in unapproved indication [Not Recovered/Not Resolved]

NARRATIVE: CASE EVENT DATE: 20211218
